FAERS Safety Report 15785212 (Version 4)
Quarter: 2019Q1

REPORT INFORMATION
  Report Type: Spontaneous
  Country: US (occurrence: US)
  Receive Date: 20190103
  Receipt Date: 20190304
  Transmission Date: 20190417
  Serious: No
  Sender: FDA-Public Use
  Company Number: US-PFIZER INC-2018533877

PATIENT
  Age: 67 Year
  Sex: Male
  Weight: 107.3 kg

DRUGS (6)
  1. SEVOFLURANE. [Concomitant]
     Active Substance: SEVOFLURANE
     Indication: PERITONEAL DIALYSIS
     Dosage: UNK
     Dates: start: 20181226, end: 20181226
  2. LIDOCAINE. [Concomitant]
     Active Substance: LIDOCAINE
     Dosage: UNK
     Dates: start: 20181226, end: 20181226
  3. PROPOFOL. [Concomitant]
     Active Substance: PROPOFOL
     Indication: PERITONEAL DIALYSIS
     Dosage: UNK
     Dates: start: 20181226, end: 20181226
  4. DEXAMETHASONE. [Concomitant]
     Active Substance: DEXAMETHASONE
     Indication: PERITONEAL DIALYSIS
     Dosage: 25 MG, UNK (25MG X 1)
     Dates: start: 20181226, end: 20181226
  5. FENTANYL. [Concomitant]
     Active Substance: FENTANYL
     Indication: PERITONEAL DIALYSIS
     Dosage: UNK
     Dates: start: 20181226, end: 20181226
  6. ROCURONIUM BROMIDE. [Suspect]
     Active Substance: ROCURONIUM BROMIDE
     Indication: SURGERY
     Dosage: 25 MG, SINGLE (1 HOUR)
     Route: 042
     Dates: start: 20181226, end: 20181226

REACTIONS (1)
  - Drug ineffective [Recovered/Resolved]

NARRATIVE: CASE EVENT DATE: 20181226
